FAERS Safety Report 10029491 (Version 1)
Quarter: 2014Q1

REPORT INFORMATION
  Report Type: Spontaneous
  Country: US (occurrence: US)
  Receive Date: 20140322
  Receipt Date: 20140322
  Transmission Date: 20141002
  Serious: No
  Sender: FDA-Public Use
  Company Number: US-009507513-1403USA008825

PATIENT
  Sex: Male

DRUGS (2)
  1. JANUMET XR [Suspect]
     Dosage: 100/1000MG ONCE A DAY
     Route: 048
     Dates: start: 20140312
  2. JANUMET XR [Suspect]
     Dosage: 50/1000MG TWICE A DAY
     Route: 048
     Dates: end: 20140311

REACTIONS (2)
  - Fatigue [Unknown]
  - Inappropriate schedule of drug administration [Unknown]
